FAERS Safety Report 6332459-7 (Version None)
Quarter: 2009Q3

REPORT INFORMATION
  Report Type: 
  Country: None (occurrence: None)
  Receive Date: 20090827
  Receipt Date: 20090827
  Transmission Date: 20100115
  Serious: No
  Sender: FDA-Public Use
  Company Number: None

PATIENT
  Age: 60 Year
  Sex: Female
  Weight: 102.0593 kg

DRUGS (4)
  1. COUMADIN [Suspect]
  2. METOPROLOL [Suspect]
  3. DIGOXIN [Suspect]
  4. DILTIAZEM [Suspect]

REACTIONS (2)
  - ALOPECIA [None]
  - ATRIAL FIBRILLATION [None]
